FAERS Safety Report 5512231-8 (Version None)
Quarter: 2007Q4

REPORT INFORMATION
  Report Type: 
  Country: None (occurrence: None)
  Receive Date: 20071108
  Receipt Date: 20071108
  Transmission Date: 20080405
  Serious: Yes (Hospitalization)
  Sender: FDA-Public Use
  Company Number: None

PATIENT
  Sex: Male
  Weight: 78 kg

DRUGS (3)
  1. OXALIPLATIN [Suspect]
     Indication: PANCREATIC CARCINOMA
     Dosage: 100 MG/M2 IV
     Route: 042
     Dates: start: 20071025
  2. ERBITUX [Suspect]
     Indication: PANCREATIC CARCINOMA
     Dosage: 400 MG/M2 IV
     Route: 042
     Dates: start: 20071025
  3. GEMZAR [Suspect]
     Indication: PANCREATIC CARCINOMA
     Dosage: 1 GM/M2 IV
     Route: 042
     Dates: start: 20071025

REACTIONS (4)
  - ABDOMINAL PAIN [None]
  - INTERNAL HERNIA [None]
  - NAUSEA [None]
  - SMALL INTESTINAL OBSTRUCTION [None]
